FAERS Safety Report 12722202 (Version 2)
Quarter: 2016Q4

REPORT INFORMATION
  Report Type: Spontaneous
  Country: RU (occurrence: RU)
  Receive Date: 20160907
  Receipt Date: 20161005
  Transmission Date: 20170207
  Serious: Yes (Death, Hospitalization, Other)
  Sender: FDA-Public Use
  Company Number: RU-BAYER-2016-169176

PATIENT
  Age: 17 Year
  Sex: Female

DRUGS (14)
  1. ALBUMIN [Concomitant]
     Active Substance: ALBUMIN HUMAN
  2. METHYLPREDNISOLONE. [Concomitant]
     Active Substance: METHYLPREDNISOLONE
     Dosage: 1000 MG, BID
     Route: 041
  3. CEFOPERAZONE W/SULBACTAM [Concomitant]
     Active Substance: CEFOPERAZONE\SULBACTAM
     Dosage: 2 G, BID
  4. METHYLPREDNISOLONE. [Concomitant]
     Active Substance: METHYLPREDNISOLONE
     Dosage: 40 MG, QD
     Route: 048
  5. METHYLPREDNISOLONE. [Concomitant]
     Active Substance: METHYLPREDNISOLONE
     Dosage: 48 MG, QD
     Route: 048
  6. CYCLOPHOSPHAN [Concomitant]
     Active Substance: CYCLOPHOSPHAMIDE
     Indication: HEART RATE INCREASED
     Dosage: 600 MG, UNK
     Route: 041
  7. RITUXIMAB [Concomitant]
     Active Substance: RITUXIMAB
     Dosage: 1000 MG, UNK
  8. AVELOX [Suspect]
     Active Substance: MOXIFLOXACIN HYDROCHLORIDE
     Dosage: 400 MG, UNK
     Route: 041
  9. CEFOPERAZONE SODIUM W/SULBACTAM [Concomitant]
     Active Substance: CEFOPERAZONE SODIUM\SULBACTAM
     Dosage: 2 G, BID
  10. METIPRED [Concomitant]
     Active Substance: METHYLPREDNISOLONE
     Dosage: 40 MG, UNK
  11. METHYLPREDNISOLONE. [Concomitant]
     Active Substance: METHYLPREDNISOLONE
     Dosage: 500 MG, QD
     Route: 048
  12. METHYLPREDNISOLONE. [Concomitant]
     Active Substance: METHYLPREDNISOLONE
     Dosage: 750 MG, QD
     Route: 041
  13. MERONEM [Concomitant]
     Active Substance: MEROPENEM
     Dosage: 1.0 G, TID
     Route: 041
  14. LEVOFLOXACIN. [Concomitant]
     Active Substance: LEVOFLOXACIN
     Dosage: 500 MG, BID
     Route: 041

REACTIONS (33)
  - Cytopenia [None]
  - Asthenia [None]
  - Anuria [None]
  - Purpura [None]
  - White blood cell count decreased [None]
  - Skin discolouration [None]
  - Tubulointerstitial nephritis [None]
  - Haematuria [None]
  - Leukocyturia [None]
  - Dermatitis [None]
  - Leukopenia [None]
  - Disseminated intravascular coagulation [None]
  - Haemoglobin decreased [None]
  - Face oedema [None]
  - Anaemia [None]
  - Cardiopulmonary failure [Fatal]
  - Nephrotic syndrome [None]
  - Condition aggravated [None]
  - Chronic kidney disease [None]
  - Proteinuria [None]
  - Cardiac arrest [Fatal]
  - Pyrexia [None]
  - Fibrin D dimer increased [None]
  - Body temperature increased [None]
  - Cardiac murmur [None]
  - Lymphadenopathy [None]
  - Thrombocytopenia [None]
  - Gastritis erosive [None]
  - Melaena [None]
  - Platelet count decreased [None]
  - Prothrombin level decreased [None]
  - Blood fibrinogen decreased [None]
  - Erythema [None]

NARRATIVE: CASE EVENT DATE: 201508
